FAERS Safety Report 9228822 (Version 1)
Quarter: 2013Q2

REPORT INFORMATION
  Report Type: Spontaneous
  Country: US (occurrence: US)
  Receive Date: 20130412
  Receipt Date: 20130412
  Transmission Date: 20140414
  Serious: No
  Sender: FDA-Public Use
  Company Number: US-ASTRAZENECA-2013SE18911

PATIENT
  Age: 80 Year
  Sex: Male

DRUGS (3)
  1. SYMBICORT [Suspect]
     Indication: ASTHMA
     Dosage: UNKNOWN TWO TIMES A DAY
     Route: 055
     Dates: start: 20130321
  2. FEXOFENADINE [Concomitant]
     Indication: MULTIPLE ALLERGIES
     Dosage: UNKNOWN DAILY
     Route: 048
  3. MONTELUKAST [Concomitant]
     Indication: MULTIPLE ALLERGIES
     Dosage: UNKNOWN DAILY
     Route: 048

REACTIONS (3)
  - Wheezing [Not Recovered/Not Resolved]
  - Increased upper airway secretion [Not Recovered/Not Resolved]
  - Cough [Not Recovered/Not Resolved]
